FAERS Safety Report 9529634 (Version 3)
Quarter: 2013Q4

REPORT INFORMATION
  Report Type: Spontaneous
  Country: JP (occurrence: JP)
  Receive Date: 20130917
  Receipt Date: 20131002
  Transmission Date: 20140711
  Serious: Yes (Other)
  Sender: FDA-Public Use
  Company Number: JP-B.I. PHARMACEUTICALS,INC./RIDGEFIELD-2013-BI-28508GD

PATIENT
  Age: 81 Year
  Sex: Female

DRUGS (7)
  1. PRAMIPEXOLE [Suspect]
     Indication: PARKINSON^S DISEASE
     Route: 048
  2. LEVODOPA/CARBIDOPA [Suspect]
     Indication: PARKINSON^S DISEASE
     Route: 048
  3. ENTACAPONE [Suspect]
     Indication: PARKINSON^S DISEASE
     Route: 048
  4. SELEGILINE [Suspect]
     Indication: PARKINSON^S DISEASE
     Route: 048
  5. LEVODOPA [Suspect]
     Indication: PARKINSON^S DISEASE
     Route: 042
  6. NORADRENALIN [Concomitant]
  7. ADRENALIN [Concomitant]

REACTIONS (6)
  - Ileus [Unknown]
  - Mediastinitis [Unknown]
  - Angina pectoris [Unknown]
  - Aortic valve stenosis [Unknown]
  - Loss of consciousness [Unknown]
  - Blood pressure decreased [Unknown]
